FAERS Safety Report 6817873-5 (Version None)
Quarter: 2010Q3

REPORT INFORMATION
  Report Type: 
  Country: None (occurrence: None)
  Receive Date: 20100706
  Receipt Date: 20100702
  Transmission Date: 20110219
  Serious: Yes (Other)
  Sender: FDA-Public Use
  Company Number: US-BRISTOL-MYERS SQUIBB COMPANY-15059637

PATIENT
  Age: 80 Year
  Sex: Female
  Weight: 59 kg

DRUGS (6)
  1. CISPLATIN [Suspect]
     Indication: TRANSITIONAL CELL CARCINOMA
     Dosage: REC INF-10MAR2010(28D),INTRPT ON 10MAR10 CYC 2 DAY 8 06APR+13APR10-ON HOLD 20APR10(DOSE REDUCED)
     Route: 042
     Dates: start: 20100210
  2. GEMCITABINE HCL [Suspect]
     Indication: TRANSITIONAL CELL CARCINOMA
     Dosage: REC INF-17MAR10, DOSE REDUCED TO 75% INTRPT-17MAR10 C2D8,6APR+13APR10-ON HOLD 20APR10(DSE RDCD)
     Route: 042
     Dates: start: 20100210
  3. CADUET [Concomitant]
     Indication: HYPERTENSION
     Route: 065
  4. CADUET [Concomitant]
     Indication: DYSLIPIDAEMIA
     Route: 065
  5. DETROL LA [Concomitant]
     Route: 065
  6. ASPIRIN [Concomitant]
     Route: 065

REACTIONS (1)
  - DEEP VEIN THROMBOSIS [None]
